FAERS Safety Report 5572143-0 (Version None)
Quarter: 2007Q4

REPORT INFORMATION
  Report Type: 
  Country: None (occurrence: None)
  Receive Date: 20071221
  Receipt Date: 20071211
  Transmission Date: 20080405
  Serious: Yes (Other)
  Sender: FDA-Public Use
  Company Number: US-PFIZER INC-2007104361

PATIENT
  Sex: Male
  Weight: 79.545 kg

DRUGS (4)
  1. LITHIUM CARBONATE [Suspect]
     Indication: BIPOLAR DISORDER
  2. LISINOPRIL [Suspect]
     Indication: HYPERTENSION
     Dates: start: 20070501, end: 20071012
  3. MOBAN [Concomitant]
  4. LAMICTAL [Concomitant]

REACTIONS (3)
  - BLOOD PRESSURE INCREASED [None]
  - RADICAL PROSTATECTOMY [None]
  - RENAL IMPAIRMENT [None]
